FAERS Safety Report 9122490 (Version 3)
Quarter: 2013Q1

REPORT INFORMATION
  Report Type: Spontaneous
  Country: US (occurrence: US)
  Receive Date: 20130115
  Receipt Date: 20130326
  Transmission Date: 20140127
  Serious: No
  Sender: FDA-Public Use
  Company Number: US-PFIZER INC-2013011675

PATIENT
  Age: 51 Year
  Sex: Female
  Weight: 47.6 kg

DRUGS (7)
  1. PREMARIN [Suspect]
     Indication: ATROPHIC VULVOVAGINITIS
     Dosage: UNK, 2X/WEEK
     Route: 067
     Dates: start: 20121222, end: 20121222
  2. PREMARIN [Suspect]
     Indication: MENOPAUSAL SYMPTOMS
     Dosage: UNK, AT BED TIME FOR 2 WEEKS
     Route: 067
     Dates: start: 20121231, end: 20121231
  3. LIPITOR [Concomitant]
     Indication: BLOOD CHOLESTEROL INCREASED
     Dosage: UNK
  4. ZOLOFT [Concomitant]
     Indication: ANXIETY
     Dosage: UNK
  5. AMITRIPTYLINE [Concomitant]
     Dosage: 25 MG, UNK
  6. ACYCLOVIR [Concomitant]
     Indication: GENITAL HERPES
     Dosage: UNK
  7. VAGIFEM [Concomitant]
     Indication: MENOPAUSAL SYMPTOMS
     Dosage: 10 UG, AT BED TIME FOR 14 DAYS
     Route: 067
     Dates: end: 20130101

REACTIONS (5)
  - Vulvovaginal burning sensation [Recovered/Resolved]
  - Vulvovaginal discomfort [Recovered/Resolved]
  - Vulvovaginal swelling [Recovered/Resolved]
  - Vulvovaginal erythema [Recovered/Resolved]
  - Vulvovaginal burning sensation [Recovered/Resolved]
